FAERS Safety Report 17394253 (Version 1)
Quarter: 2020Q1

REPORT INFORMATION
  Report Type: Report from Study
  Country: CO (occurrence: CO)
  Receive Date: 20200210
  Receipt Date: 20200210
  Transmission Date: 20200409
  Serious: Yes (Other)
  Sender: FDA-Public Use
  Company Number: CO-ROCHE-2537427

PATIENT
  Sex: Male

DRUGS (5)
  1. CALCIBON D [Concomitant]
  2. RAPAMUNE [Concomitant]
     Active Substance: SIROLIMUS
     Dosage: 3 PER DAY
     Route: 065
  3. CELLCEPT [Suspect]
     Active Substance: MYCOPHENOLATE MOFETIL\MYCOPHENOLATE MOFETIL HYDROCHLORIDE
     Dosage: 3 TABLETS PER DAY
     Route: 048
  4. CELLCEPT [Suspect]
     Active Substance: MYCOPHENOLATE MOFETIL\MYCOPHENOLATE MOFETIL HYDROCHLORIDE
     Indication: TRANSPLANT
     Dosage: 4 TABLETS PER DAY
     Route: 048
  5. RAPAMUNE [Concomitant]
     Active Substance: SIROLIMUS
     Dosage: 2 PER DAY
     Route: 065

REACTIONS (1)
  - Haematotoxicity [Unknown]
